FAERS Safety Report 22155544 (Version 1)
Quarter: 2023Q1

REPORT INFORMATION
  Report Type: Spontaneous
  Country: DE (occurrence: DE)
  Receive Date: 20230330
  Receipt Date: 20230330
  Transmission Date: 20230418
  Serious: Yes (Other)
  Sender: FDA-Public Use
  Company Number: DE-drreddys-LIT/GER/23/0163092

PATIENT
  Age: 55 Year
  Sex: Female

DRUGS (6)
  1. ZOLEDRONIC ACID [Suspect]
     Active Substance: ZOLEDRONIC ACID
     Indication: Langerhans^ cell histiocytosis
  2. ETORICOXIB [Suspect]
     Active Substance: ETORICOXIB
     Indication: Langerhans^ cell histiocytosis
     Route: 048
  3. CYTARABINE [Suspect]
     Active Substance: CYTARABINE
     Indication: Langerhans^ cell histiocytosis
  4. PIOGLITAZONE [Suspect]
     Active Substance: PIOGLITAZONE
     Indication: Langerhans^ cell histiocytosis
     Route: 048
  5. TROFOSFAMIDE [Suspect]
     Active Substance: TROFOSFAMIDE
     Indication: Langerhans^ cell histiocytosis
     Route: 048
  6. DEXAMETHASONE [Concomitant]
     Active Substance: DEXAMETHASONE
     Indication: Antiinflammatory therapy

REACTIONS (4)
  - Neutropenia [Recovered/Resolved]
  - Treatment failure [Unknown]
  - Oedema [Recovered/Resolved]
  - Product use in unapproved indication [Unknown]
